FAERS Safety Report 20763888 (Version 1)
Quarter: 2022Q2

REPORT INFORMATION
  Report Type: Spontaneous
  Country: US (occurrence: None)
  Receive Date: 20220428
  Receipt Date: 20220428
  Transmission Date: 20220721
  Serious: Yes (Death)
  Sender: FDA-Public Use
  Company Number: None

PATIENT
  Age: 46 Year
  Sex: Female

DRUGS (9)
  1. CIMZIA [Suspect]
     Active Substance: CERTOLIZUMAB PEGOL
     Indication: Respiratory disorder
     Dosage: FREQUENCY : EVERY OTHER WEEK;?
     Route: 058
     Dates: start: 20201214, end: 20220426
  2. NUCALA [Suspect]
     Active Substance: MEPOLIZUMAB
     Indication: Respiratory disorder
     Dosage: FREQUENCY : MONTHLY;?
     Route: 058
     Dates: start: 20210310, end: 20220426
  3. INCRUSE ELLIPTA [Concomitant]
  4. AZELASTINE NASAL [Concomitant]
  5. ALBUTEROL HFA [Concomitant]
  6. SPIRONOLACTONE [Concomitant]
  7. BACLOFEN [Concomitant]
  8. LATUDA [Concomitant]
  9. GABAPENTIN [Concomitant]

REACTIONS (1)
  - Death [None]

NARRATIVE: CASE EVENT DATE: 20220426
